FAERS Safety Report 5720112-X (Version None)
Quarter: 2008Q2

REPORT INFORMATION
  Report Type: 
  Country: None (occurrence: None)
  Receive Date: 20080428
  Receipt Date: 20080221
  Transmission Date: 20081010
  Serious: No
  Sender: FDA-Public Use
  Company Number: US-AMGEN-US266466

PATIENT
  Sex: Female
  Weight: 94.5 kg

DRUGS (11)
  1. SENSIPAR [Suspect]
     Indication: HYPERPARATHYROIDISM SECONDARY
     Route: 065
     Dates: start: 20080101, end: 20080201
  2. EPOGEN [Concomitant]
     Route: 065
  3. ZEMPLAR [Concomitant]
     Route: 065
  4. ZOLOFT [Concomitant]
     Route: 065
  5. TRAMADOL HCL [Concomitant]
     Route: 065
  6. RENAGEL [Concomitant]
     Route: 065
  7. VITAMIN TAB [Concomitant]
     Route: 065
  8. NEURONTIN [Concomitant]
     Route: 065
  9. INSULIN [Concomitant]
     Route: 065
  10. DIPHENOXYLATE [Concomitant]
     Route: 065
  11. NORVASC [Concomitant]
     Route: 065

REACTIONS (1)
  - BLOOD PARATHYROID HORMONE DECREASED [None]
